FAERS Safety Report 5631878-1 (Version None)
Quarter: 2008Q1

REPORT INFORMATION
  Report Type: 
  Country: None (occurrence: None)
  Receive Date: 20080219
  Receipt Date: 20080219
  Transmission Date: 20080703
  Serious: Yes (Hospitalization)
  Sender: FDA-Public Use
  Company Number: None

PATIENT
  Sex: Female
  Weight: 118.3 kg

DRUGS (3)
  1. FLUOROURACIL [Suspect]
     Dosage: 6632 MG
  2. ERBITUX [Suspect]
     Dosage: 553 MG
  3. COUMADIN [Concomitant]

REACTIONS (7)
  - ASTHENIA [None]
  - DIARRHOEA [None]
  - HYPOMAGNESAEMIA [None]
  - INFUSION RELATED REACTION [None]
  - INTERNATIONAL NORMALISED RATIO INCREASED [None]
  - PERFORMANCE STATUS DECREASED [None]
  - RECTAL HAEMORRHAGE [None]
